FAERS Safety Report 9416747 (Version 3)
Quarter: 2013Q3

REPORT INFORMATION
  Report Type: Spontaneous
  Country: IT (occurrence: IT)
  Receive Date: 20130724
  Receipt Date: 20130902
  Transmission Date: 20140515
  Serious: Yes (Hospitalization)
  Sender: FDA-Public Use
  Company Number: IT-PFIZER INC-2013213882

PATIENT
  Age: 78 Year
  Sex: Male

DRUGS (10)
  1. ADRIBLASTINA [Suspect]
     Indication: NON-HODGKIN^S LYMPHOMA
     Dosage: 25 MG, CYCLIC
     Route: 040
     Dates: start: 20120306, end: 20120719
  2. BLEOMYCIN [Suspect]
     Indication: NON-HODGKIN^S LYMPHOMA
     Dosage: 10 MG, CYCLIC
     Route: 040
     Dates: start: 20120306, end: 20120719
  3. VINBLASTINE [Suspect]
     Indication: NON-HODGKIN^S LYMPHOMA
     Dosage: 6 MG, CYCLIC
     Route: 040
     Dates: start: 20120306, end: 20120719
  4. DACARBAZINE [Suspect]
     Indication: NON-HODGKIN^S LYMPHOMA
     Dosage: 375 MG, CYCLIC
     Route: 040
     Dates: start: 20120306, end: 20120719
  5. NEXIUM [Concomitant]
  6. CARDIOASPIRIN [Concomitant]
  7. ZYLORIC ^GLAXO WELLCOME^ [Concomitant]
  8. ZOFRAN [Concomitant]
  9. MYCOSTATIN [Concomitant]
  10. ATENOLOL [Concomitant]

REACTIONS (3)
  - Herpes zoster [Recovered/Resolved]
  - Neuralgia [Recovering/Resolving]
  - Paraesthesia [Recovering/Resolving]
